FAERS Safety Report 7177711-0 (Version None)
Quarter: 2010Q4

REPORT INFORMATION
  Report Type: 
  Country: None (occurrence: None)
  Receive Date: 20101220
  Receipt Date: 20101207
  Transmission Date: 20110411
  Serious: Yes (Hospitalization, Other)
  Sender: FDA-Public Use
  Company Number: PL-AMGEN-POLSP2010009079

PATIENT

DRUGS (6)
  1. ETANERCEPT [Suspect]
     Dosage: 50 MG, ONCE A WEEK
     Route: 058
     Dates: start: 20100329, end: 20101011
  2. METHOTREXATE [Concomitant]
     Dosage: 20 MG, WEEKLY
     Route: 048
     Dates: start: 20030101, end: 20100101
  3. ACIDUM FOLICUM [Concomitant]
     Dosage: 15 MG, WEEKLY
     Route: 048
  4. METYPRED ^UNS^ [Concomitant]
     Dosage: 8 MG, 1X/DAY IN THE MORNING
     Route: 048
     Dates: start: 20030101
  5. OSTEMAX [Concomitant]
     Dosage: 70 MG, QWK
     Dates: start: 20100101
  6. FEBROFEN [Concomitant]
     Dosage: 200 MG, UNK
     Route: 048
     Dates: start: 20090101

REACTIONS (1)
  - RENAL CANCER [None]
